FAERS Safety Report 8555654-5 (Version None)
Quarter: 2012Q3

REPORT INFORMATION
  Report Type: 
  Country: None (occurrence: None)
  Receive Date: 20120801
  Receipt Date: 20120718
  Transmission Date: 20120928
  Serious: Yes (Hospitalization, Other)
  Sender: FDA-Public Use
  Company Number: GB-MYLANLABS-2012S1014628

PATIENT
  Age: 70 Year
  Sex: Female
  Weight: 72 kg

DRUGS (2)
  1. AMISULPRIDE [Concomitant]
     Indication: MAJOR DEPRESSION
     Route: 048
     Dates: start: 20120419, end: 20120629
  2. QUETIAPINE [Suspect]
     Indication: MAJOR DEPRESSION
     Route: 048
     Dates: start: 20120518, end: 20120527

REACTIONS (2)
  - CONJUNCTIVAL DISORDER [None]
  - RASH MACULO-PAPULAR [None]
